FAERS Safety Report 18586583 (Version 1)
Quarter: 2020Q4

REPORT INFORMATION
  Report Type: Spontaneous
  Country: US (occurrence: US)
  Receive Date: 20201207
  Receipt Date: 20201207
  Transmission Date: 20210114
  Serious: No
  Sender: FDA-Public Use
  Company Number: None

PATIENT
  Age: 73 Year
  Sex: Male
  Weight: 92.25 kg

DRUGS (7)
  1. CAPECITABINE. [Suspect]
     Active Substance: CAPECITABINE
     Indication: RECTAL CANCER
     Route: 048
     Dates: start: 20200901
  2. HYDROCHLOROTHIAZIDE, ORAL [Concomitant]
  3. VITAMIN C, ORAL [Concomitant]
  4. OMEGA 3, 500 MG [Concomitant]
  5. METFORMIN, ORAL [Concomitant]
  6. GLIMEPIRIDE, ORAL [Concomitant]
  7. BENICAR, ORAL [Concomitant]

REACTIONS (1)
  - Pain in extremity [None]

NARRATIVE: CASE EVENT DATE: 20201207
